FAERS Safety Report 7577208-X (Version None)
Quarter: 2011Q2

REPORT INFORMATION
  Report Type: 
  Country: None (occurrence: None)
  Receive Date: 20110628
  Receipt Date: 20110616
  Transmission Date: 20111010
  Serious: Yes (Hospitalization)
  Sender: FDA-Public Use
  Company Number: US-BAYER-2011-052242

PATIENT
  Age: 69 Year
  Sex: Male

DRUGS (1)
  1. MAGNEVIST [Suspect]
     Indication: ARTERIOGRAM CORONARY
     Dosage: UNK
     Route: 042
     Dates: start: 20110616, end: 20110616

REACTIONS (5)
  - DYSGEUSIA [None]
  - SENSATION OF FOREIGN BODY [None]
  - DYSPHAGIA [None]
  - PARAESTHESIA [None]
  - FEELING OF BODY TEMPERATURE CHANGE [None]
